FAERS Safety Report 7280737-X (Version None)
Quarter: 2011Q1

REPORT INFORMATION
  Report Type: 
  Country: None (occurrence: None)
  Receive Date: 20110208
  Receipt Date: 20110201
  Transmission Date: 20110831
  Serious: Yes (Other)
  Sender: FDA-Public Use
  Company Number: B0698329A

PATIENT
  Age: 40 Year
  Sex: Male

DRUGS (5)
  1. XANOR [Concomitant]
  2. CRESTOR [Concomitant]
  3. LAMICTAL [Suspect]
     Indication: BIPOLAR DISORDER
     Dosage: 300MG PER DAY
     Route: 048
     Dates: start: 20020101
  4. ZOLPIDEM TARTRATE [Concomitant]
  5. ZYPREXA [Concomitant]

REACTIONS (1)
  - FUNGAL INFECTION [None]
